FAERS Safety Report 15314378 (Version 1)
Quarter: 2018Q3

REPORT INFORMATION
  Report Type: Spontaneous
  Country: US (occurrence: US)
  Receive Date: 20180814
  Receipt Date: 20180814
  Transmission Date: 20181010
  Serious: Yes (Other)
  Sender: FDA-Public Use
  Company Number: None

PATIENT
  Age: 74 Year
  Sex: Female
  Weight: 103.42 kg

DRUGS (1)
  1. VALSARTAN 160MG TAB SOL [Suspect]
     Active Substance: VALSARTAN
     Indication: HYPERTENSION
     Dosage: ?          QUANTITY:1 DF DOSAGE FORM;?
     Route: 048
     Dates: start: 20180309, end: 20180120

REACTIONS (2)
  - Blood urine present [None]
  - Renal cancer [None]

NARRATIVE: CASE EVENT DATE: 20180505
